FAERS Safety Report 5976400-5 (Version None)
Quarter: 2008Q4

REPORT INFORMATION
  Report Type: 
  Country: None (occurrence: None)
  Receive Date: 20081202
  Receipt Date: 20081121
  Transmission Date: 20090506
  Serious: Yes (Death)
  Sender: FDA-Public Use
  Company Number: FR-BAXTER-2008BH012980

PATIENT

DRUGS (2)
  1. VINORELBINE TARTRATE [Suspect]
     Indication: NON-SMALL CELL LUNG CANCER
     Route: 040
  2. MITOMYCIN [Suspect]
     Indication: NON-SMALL CELL LUNG CANCER
     Route: 040

REACTIONS (1)
  - DEATH [None]
